FAERS Safety Report 9162374 (Version 1)
Quarter: 2013Q1

REPORT INFORMATION
  Report Type: Spontaneous
  Country: US (occurrence: US)
  Receive Date: 20130314
  Receipt Date: 20130314
  Transmission Date: 20140127
  Serious: No
  Sender: FDA-Public Use
  Company Number: US-PFIZER INC-2013084140

PATIENT
  Age: 75 Year
  Sex: Male
  Weight: 79.37 kg

DRUGS (5)
  1. NEURONTIN [Suspect]
     Indication: NEUROPATHY PERIPHERAL
     Dosage: 50 MG, 1X/DAY
     Route: 048
     Dates: start: 20120112, end: 201202
  2. LYRICA [Suspect]
     Indication: NEUROPATHY PERIPHERAL
     Dosage: 50 MG, UNK
     Route: 048
  3. LYRICA [Suspect]
     Dosage: UNK
     Dates: start: 201203
  4. LYRICA [Suspect]
     Dosage: 75 MG, UNK
     Route: 048
  5. LYRICA [Suspect]
     Dosage: 50 MG, UNK
     Route: 048

REACTIONS (3)
  - Drug hypersensitivity [Unknown]
  - Paraesthesia [Unknown]
  - Hypoaesthesia [Unknown]
